FAERS Safety Report 7389255-1 (Version None)
Quarter: 2011Q2

REPORT INFORMATION
  Report Type: 
  Country: None (occurrence: None)
  Receive Date: 20110401
  Receipt Date: 20101029
  Transmission Date: 20111010
  Serious: No
  Sender: FDA-Public Use
  Company Number: US-BAYER-201023277BCC

PATIENT
  Sex: Male

DRUGS (1)
  1. PHILLIPS LIQUID GEL [Suspect]
     Dosage: COUNT BOTTLE 30S

REACTIONS (1)
  - FAECES HARD [None]
